FAERS Safety Report 16422611 (Version 2)
Quarter: 2019Q2

REPORT INFORMATION
  Report Type: Report from Study
  Country: DE (occurrence: DE)
  Receive Date: 20190612
  Receipt Date: 20190626
  Transmission Date: 20190711
  Serious: Yes (Hospitalization, Other)
  Sender: FDA-Public Use
  Company Number: DE-BRISTOL-MYERS SQUIBB COMPANY-BMS-2019-055695

PATIENT
  Age: 82 Year
  Sex: Male
  Weight: 89 kg

DRUGS (2)
  1. NIVOLUMAB [Suspect]
     Active Substance: NIVOLUMAB
     Indication: TRANSITIONAL CELL CARCINOMA
     Dosage: 90 MILLIGRAM
     Route: 065
     Dates: start: 20181204
  2. IPILIMUMAB [Suspect]
     Active Substance: IPILIMUMAB
     Indication: TRANSITIONAL CELL CARCINOMA
     Dosage: 270 MILLIGRAM
     Route: 065
     Dates: start: 20190129

REACTIONS (2)
  - Acute kidney injury [Unknown]
  - Urticaria [Not Recovered/Not Resolved]

NARRATIVE: CASE EVENT DATE: 20190603
